FAERS Safety Report 13926512 (Version 1)
Quarter: 2017Q3

REPORT INFORMATION
  Report Type: Report from Study
  Country: CA (occurrence: CA)
  Receive Date: 20170831
  Receipt Date: 20170831
  Transmission Date: 20171127
  Serious: Yes (Hospitalization, Other)
  Sender: FDA-Public Use
  Company Number: CA-B.I. PHARMACEUTICALS,INC./RIDGEFIELD-2017-BI-033113

PATIENT
  Age: 48 Year
  Sex: Male

DRUGS (1)
  1. GILOTRIF [Suspect]
     Active Substance: AFATINIB
     Indication: LUNG ADENOCARCINOMA
     Route: 048
     Dates: start: 20170602

REACTIONS (12)
  - Glossitis [Not Recovered/Not Resolved]
  - Liver function test increased [Recovered/Resolved]
  - Sepsis [Recovered/Resolved]
  - Diarrhoea [Unknown]
  - Medical device site infection [Unknown]
  - Cough [Recovered/Resolved]
  - Vomiting [Unknown]
  - Pyrexia [Recovered/Resolved]
  - Pneumonia [Recovered/Resolved]
  - Device related infection [Recovered/Resolved]
  - Infection [Unknown]
  - Chest pain [Unknown]

NARRATIVE: CASE EVENT DATE: 201706
